FAERS Safety Report 7426342-3 (Version None)
Quarter: 2011Q2

REPORT INFORMATION
  Report Type: 
  Country: None (occurrence: None)
  Receive Date: 20110420
  Receipt Date: 20110413
  Transmission Date: 20111010
  Serious: Yes (Other)
  Sender: FDA-Public Use
  Company Number: B0714007A

PATIENT
  Age: 26 Year
  Sex: Female
  Weight: 65 kg

DRUGS (1)
  1. ARIXTRA [Suspect]
     Indication: DEEP VEIN THROMBOSIS
     Dosage: 2.5MG SINGLE DOSE
     Route: 058

REACTIONS (9)
  - SEPSIS [None]
  - PLATELET DISORDER [None]
  - RENAL IMPAIRMENT [None]
  - HAEMORRHAGE [None]
  - PYREXIA [None]
  - LIVER DISORDER [None]
  - COAGULOPATHY [None]
  - PLATELET COUNT DECREASED [None]
  - ABDOMINAL PAIN [None]
